FAERS Safety Report 15614580 (Version 1)
Quarter: 2018Q4

REPORT INFORMATION
  Report Type: Spontaneous
  Country: IT (occurrence: IT)
  Receive Date: 20181113
  Receipt Date: 20181113
  Transmission Date: 20190205
  Serious: Yes (Hospitalization)
  Sender: FDA-Public Use
  Company Number: IT-CELLTRION INC.-2018IT022636

PATIENT

DRUGS (3)
  1. METHOTREXATE SODIUM. [Suspect]
     Active Substance: METHOTREXATE SODIUM
     Indication: PITYRIASIS RUBRA PILARIS
     Dosage: 5 MG/KG, CY
     Route: 065
  2. INFLIXIMAB PFIZER (UNKNOWN) [Suspect]
     Active Substance: INFLIXIMAB
     Indication: PITYRIASIS RUBRA PILARIS
     Dosage: 5 MG/KG, (AT WK 0,2,4,6  AND EVERY 8 WK); UNKNOWN
     Route: 065
  3. ACITRETIN. [Suspect]
     Active Substance: ACITRETIN
     Indication: PITYRIASIS RUBRA PILARIS
     Dosage: 25 MG, DAILY
     Route: 065

REACTIONS (1)
  - Drug effect incomplete [Unknown]
